FAERS Safety Report 10560933 (Version 4)
Quarter: 2017Q1

REPORT INFORMATION
  Report Type: Report from Study
  Country: US (occurrence: US)
  Receive Date: 20141103
  Receipt Date: 20170215
  Transmission Date: 20170428
  Serious: Yes (Other)
  Sender: FDA-Public Use
  Company Number: US-SA-2014SA111138

PATIENT
  Age: 57 Year
  Sex: Female

DRUGS (1)
  1. AUBAGIO [Suspect]
     Active Substance: TERIFLUNOMIDE
     Indication: MULTIPLE SCLEROSIS
     Route: 048
     Dates: start: 20140524

REACTIONS (7)
  - Mass [Unknown]
  - Rash macular [Recovered/Resolved]
  - Dizziness [Unknown]
  - Diarrhoea [Not Recovered/Not Resolved]
  - Inner ear disorder [Unknown]
  - Memory impairment [Unknown]
  - Urinary retention [Not Recovered/Not Resolved]

NARRATIVE: CASE EVENT DATE: 2015
